FAERS Safety Report 6424090-X (Version None)
Quarter: 2009Q4

REPORT INFORMATION
  Report Type: 
  Country: None (occurrence: None)
  Receive Date: 20091102
  Receipt Date: 20091026
  Transmission Date: 20100525
  Serious: Yes (Hospitalization)
  Sender: FDA-Public Use
  Company Number: PHHY2009FR46455

PATIENT
  Sex: Female

DRUGS (6)
  1. NEORAL [Suspect]
     Indication: LUNG TRANSPLANT
     Dosage: 250 MG, TID
     Route: 048
     Dates: start: 20090831
  2. CELLCEPT [Suspect]
     Indication: LUNG TRANSPLANT
     Dosage: 200 MG, BID
     Route: 048
     Dates: start: 20090901
  3. MOPRAL [Suspect]
     Indication: GASTRITIS PROPHYLAXIS
     Dosage: 20 MG, BID
     Route: 048
     Dates: start: 20090831
  4. SOLU-MEDROL [Concomitant]
     Dosage: 20 MG, QD
     Route: 048
     Dates: start: 20090831
  5. TOBI [Concomitant]
  6. PENTACARINAT [Concomitant]
     Dosage: UNK

REACTIONS (5)
  - BEZOAR [None]
  - DRUG LEVEL FLUCTUATING [None]
  - GASTRIC HYPOMOTILITY [None]
  - GASTROOESOPHAGEAL REFLUX DISEASE [None]
  - MALABSORPTION [None]
